FAERS Safety Report 22888479 (Version 5)
Quarter: 2023Q4

REPORT INFORMATION
  Report Type: Report from Study
  Country: CL (occurrence: CL)
  Receive Date: 20230831
  Receipt Date: 20231208
  Transmission Date: 20240110
  Serious: Yes (Disabling)
  Sender: FDA-Public Use
  Company Number: CL-SA-SAC20230829000448

PATIENT
  Age: 12 Year
  Sex: Male

DRUGS (1)
  1. AGALSIDASE BETA [Suspect]
     Active Substance: AGALSIDASE BETA
     Dosage: 2 DF, QOW(2 VIALS EVERY 14 DAYS)
     Route: 042

REACTIONS (7)
  - Loss of personal independence in daily activities [Recovered/Resolved]
  - Neuralgia [Recovered/Resolved]
  - Hypotension [Recovered/Resolved]
  - Myalgia [Recovered/Resolved]
  - Pain in extremity [Recovered/Resolved]
  - Headache [Recovered/Resolved]
  - Fatigue [Unknown]

NARRATIVE: CASE EVENT DATE: 20230808
